FAERS Safety Report 20148800 (Version 1)
Quarter: 2021Q4

REPORT INFORMATION
  Report Type: Spontaneous
  Country: US (occurrence: US)
  Receive Date: 20211204
  Receipt Date: 20211204
  Transmission Date: 20220303
  Serious: No
  Sender: FDA-Public Use
  Company Number: US-Sprout Pharmaceuticals, Inc.-2021SP000326

PATIENT
  Age: 10 Month
  Sex: Male

DRUGS (1)
  1. ADDYI [Suspect]
     Active Substance: FLIBANSERIN
     Indication: Accidental exposure to product by child
     Dosage: 4-5 TABLETS (400-500 MG)
     Route: 048
     Dates: start: 20211123, end: 20211123

REACTIONS (6)
  - Depressed level of consciousness [Recovered/Resolved]
  - Accidental exposure to product by child [Recovered/Resolved]
  - Feeling abnormal [Recovered/Resolved]
  - Asthenia [Recovered/Resolved]
  - Sluggishness [Recovered/Resolved]
  - Somnolence [Recovered/Resolved]

NARRATIVE: CASE EVENT DATE: 20211123
